FAERS Safety Report 7608937-7 (Version None)
Quarter: 2011Q3

REPORT INFORMATION
  Report Type: 
  Country: None (occurrence: None)
  Receive Date: 20110714
  Receipt Date: 20110705
  Transmission Date: 20111222
  Serious: Yes (Disabling)
  Sender: FDA-Public Use
  Company Number: US-GLAXOSMITHKLINE-A0931882A

PATIENT
  Age: 58 Year
  Sex: Female
  Weight: 68.2 kg

DRUGS (3)
  1. WELLBUTRIN XL [Concomitant]
     Indication: MAJOR DEPRESSION
  2. DEPAKOTE [Concomitant]
     Indication: MAJOR DEPRESSION
  3. LAMICTAL [Suspect]
     Indication: MAJOR DEPRESSION
     Dosage: 25MG SINGLE DOSE
     Route: 048
     Dates: start: 20110121

REACTIONS (8)
  - PARANOIA [None]
  - NIGHTMARE [None]
  - AGITATION [None]
  - ANGER [None]
  - WRONG TECHNIQUE IN DRUG USAGE PROCESS [None]
  - POOR QUALITY SLEEP [None]
  - OFF LABEL USE [None]
  - ENERGY INCREASED [None]
